FAERS Safety Report 9441035 (Version 1)
Quarter: 2013Q3

REPORT INFORMATION
  Report Type: Spontaneous
  Country: US (occurrence: US)
  Receive Date: 20130805
  Receipt Date: 20130805
  Transmission Date: 20140515
  Serious: Yes (Other)
  Sender: FDA-Public Use
  Company Number: CHPA2013US012225

PATIENT
  Age: 13 Year
  Sex: Female

DRUGS (4)
  1. ACETYLSALICYLIC ACID [Suspect]
     Dosage: UNK, UNK
     Route: 048
  2. ACETYLSALICYLIC ACID [Suspect]
     Dosage: 650 MG, BID
     Route: 048
  3. FLUTICASONE [Suspect]
     Dosage: UNK, UNK
     Route: 045
  4. PREDNISONE [Suspect]
     Dosage: UNK, UNK

REACTIONS (5)
  - Analgesic asthma syndrome [Unknown]
  - Polyp [Unknown]
  - Nasal congestion [Unknown]
  - Anosmia [Unknown]
  - Drug ineffective [Unknown]
